FAERS Safety Report 9216838 (Version 11)
Quarter: 2013Q4

REPORT INFORMATION
  Report Type: Report from Study
  Country: IT (occurrence: IT)
  Receive Date: 20130408
  Receipt Date: 20131014
  Transmission Date: 20140711
  Serious: Yes (Hospitalization)
  Sender: FDA-Public Use
  Company Number: IT-BAYER-2013-039499

PATIENT
  Age: 74 Year
  Sex: Female
  Weight: 44 kg

DRUGS (12)
  1. SORAFENIB (RAF KINASE INHIBITOR) [Suspect]
     Indication: THYROID CANCER
     Dosage: UNK
     Dates: start: 20101222
  2. SORAFENIB (RAF KINASE INHIBITOR) [Suspect]
     Indication: THYROID CANCER
     Dosage: 200+400MG DAILY
     Route: 048
     Dates: start: 20121120, end: 20130121
  3. SORAFENIB (RAF KINASE INHIBITOR) [Suspect]
     Indication: THYROID CANCER
     Dosage: 200+400 MG DAILY
     Route: 048
     Dates: start: 20130122, end: 20130130
  4. PLACEBO (14295) [Suspect]
     Indication: THYROID CANCER
     Dosage: UNK
     Dates: start: 20101027, end: 20101221
  5. LANSOX [Concomitant]
     Indication: GASTRITIS
     Dosage: DAILY DOSE 15 MG
     Route: 048
     Dates: start: 20051201
  6. TRIATEC [Concomitant]
     Indication: HYPERTENSION
     Dosage: DAILY DOSE 5 MG
     Route: 048
     Dates: start: 20121002
  7. CARDIOASPIRIN [Concomitant]
     Indication: DYSLIPIDAEMIA
     Dosage: DAILY DOSE 100 MG
     Route: 048
     Dates: start: 20101002
  8. FERROGRAD [Concomitant]
     Indication: ANAEMIA
     Dosage: DAILY DOSE 525 MG
     Route: 048
     Dates: start: 19580520
  9. TOTALIP [Concomitant]
     Indication: DYSLIPIDAEMIA
     Dosage: DAILY DOSE 10 MG
     Route: 048
     Dates: start: 20031002
  10. NERIXIA [Concomitant]
     Indication: OSTEOPOROSIS
     Dosage: 100 MG, Q1MON
     Dates: start: 19931201
  11. CODEX [Concomitant]
     Indication: DIARRHOEA
     Dosage: DAILY DOSE 2 DF
     Route: 048
     Dates: start: 20110325
  12. PEG [Concomitant]
     Indication: PALMAR-PLANTAR ERYTHRODYSAESTHESIA SYNDROME
     Dosage: 300 5 ML

REACTIONS (7)
  - Hyperthyroidism [Recovered/Resolved]
  - Diarrhoea [Recovered/Resolved]
  - Vomiting [Recovered/Resolved]
  - Dyspnoea [Recovered/Resolved with Sequelae]
  - Cardiac failure [Recovered/Resolved with Sequelae]
  - Pulmonary oedema [Recovered/Resolved with Sequelae]
  - Hyperthyroidism [None]
